FAERS Safety Report 4807519-X (Version None)
Quarter: 2005Q4

REPORT INFORMATION
  Report Type: 
  Country: None (occurrence: None)
  Receive Date: 20051024
  Receipt Date: 20051013
  Transmission Date: 20060501
  Serious: Yes (Other)
  Sender: FDA-Public Use
  Company Number: FR-JNJFOC-20051002848

PATIENT
  Sex: Female

DRUGS (1)
  1. EPITOMAX [Suspect]
     Indication: MIGRAINE PROPHYLAXIS
     Route: 048

REACTIONS (2)
  - LARYNGEAL OEDEMA [None]
  - TONGUE BLACK HAIRY [None]
